FAERS Safety Report 7365917-7 (Version None)
Quarter: 2011Q1

REPORT INFORMATION
  Report Type: 
  Country: None (occurrence: None)
  Receive Date: 20110322
  Receipt Date: 20100723
  Transmission Date: 20110831
  Serious: Yes (Hospitalization, Other)
  Sender: FDA-Public Use
  Company Number: US-BAYER-201018877NA

PATIENT
  Sex: Female
  Weight: 88.889 kg

DRUGS (9)
  1. ANTIHYPERTENSIVES [Concomitant]
     Dosage: ??-MAR-2006
     Dates: start: 20060301
  2. AMPHETAMINE AND DEXTROAMPHETAMINE SALTS [Concomitant]
  3. ACETAMINOPHEN [Concomitant]
  4. ALEVE [Concomitant]
  5. NSAID'S [Concomitant]
  6. YAZ [Suspect]
     Indication: PRODUCT USED FOR UNKNOWN INDICATION
     Route: 048
  7. YASMIN [Suspect]
     Indication: PRODUCT USED FOR UNKNOWN INDICATION
     Route: 048
  8. ASCORBIC ACID [Concomitant]
  9. OCELLA [Suspect]

REACTIONS (4)
  - CHEST PAIN [None]
  - CHOLELITHIASIS [None]
  - CHOLECYSTITIS CHRONIC [None]
  - PAIN [None]
